FAERS Safety Report 10217394 (Version 1)
Quarter: 2014Q2

REPORT INFORMATION
  Report Type: Spontaneous
  Country: US (occurrence: US)
  Receive Date: 20140604
  Receipt Date: 20140604
  Transmission Date: 20141212
  Serious: Yes (Other)
  Sender: FDA-Public Use
  Company Number: US-PFIZER INC-2014150333

PATIENT
  Age: 51 Year
  Sex: Female
  Weight: 58.96 kg

DRUGS (4)
  1. LYRICA [Suspect]
     Indication: ARNOLD-CHIARI MALFORMATION
     Dosage: 150 MG, 2X/DAY
     Route: 048
     Dates: start: 2013
  2. SYNTHROID [Concomitant]
     Dosage: 75 UG, UNK
  3. METHADONE [Concomitant]
     Dosage: 50 MG, 3X/DAY
  4. PAROXETINE [Concomitant]
     Dosage: UNK

REACTIONS (1)
  - Arnold-Chiari malformation [Unknown]
